FAERS Safety Report 8169865-4 (Version None)
Quarter: 2012Q1

REPORT INFORMATION
  Report Type: 
  Country: None (occurrence: None)
  Receive Date: 20120222
  Receipt Date: 20120214
  Transmission Date: 20120608
  Serious: Yes (Other)
  Sender: FDA-Public Use
  Company Number: AUR-APL-2012-00963

PATIENT
  Age: 67 Year
  Sex: Male

DRUGS (6)
  1. DULOXETINE HYDROCHLORIDE [Concomitant]
  2. METFORMIN HCL [Concomitant]
  3. SIMVASTATIN [Concomitant]
  4. NAPROXEN [Suspect]
     Indication: PAIN MANAGEMENT
     Dosage: 1000 MG (500 MG, 2 IN 1 D), ORAL
     Route: 048
     Dates: start: 20120106, end: 20120113
  5. NOVOMIX (INSULIN ASPART) [Concomitant]
  6. VARDENAFIL (VARDENAFIL) [Concomitant]

REACTIONS (1)
  - HYPOAESTHESIA [None]
